FAERS Safety Report 9790296 (Version 2)
Quarter: 2014Q1

REPORT INFORMATION
  Report Type: Spontaneous
  Country: US (occurrence: US)
  Receive Date: 20131231
  Receipt Date: 20140128
  Transmission Date: 20141002
  Serious: Yes (Other)
  Sender: FDA-Public Use
  Company Number: US-SA-2013SA136167

PATIENT
  Age: 50 Year
  Sex: Female

DRUGS (2)
  1. LANTUS SOLOSTAR [Suspect]
     Indication: TYPE 1 DIABETES MELLITUS
     Dosage: DOSE:10 UNIT(S)
     Route: 051
  2. SOLOSTAR [Concomitant]
     Indication: TYPE 1 DIABETES MELLITUS

REACTIONS (5)
  - Pneumonia [Unknown]
  - Influenza [Unknown]
  - Visual acuity reduced [Unknown]
  - Blood glucose increased [Unknown]
  - Emotional distress [Unknown]
